FAERS Safety Report 9999719 (Version 1)
Quarter: 2014Q1

REPORT INFORMATION
  Report Type: Spontaneous
  Country: US (occurrence: None)
  Receive Date: 20140228
  Receipt Date: 20140228
  Transmission Date: 20141002
  Serious: Yes (Other)
  Sender: FDA-Public Use
  Company Number: PHEH2013US009447

PATIENT
  Age: 51 Year
  Sex: Female

DRUGS (6)
  1. NEORAL [Suspect]
  2. CRESTOR (ROSUVASTIN CALCIUM) [Concomitant]
  3. COZAAR (LOSARTAN POTASSIUM) (50 MILLIGRAM, TABLETS) (LOSARTAN POTASSIUM) [Concomitant]
  4. ZEMPLAR (PARICALCITOL) [Concomitant]
  5. PREVACID (LANSOPRAZOLE) [Concomitant]
  6. SODIUM BICARBONATE (SODIUM BICARBONATE) [Concomitant]

REACTIONS (1)
  - Renal failure [None]
